FAERS Safety Report 8083571-6 (Version None)
Quarter: 2012Q1

REPORT INFORMATION
  Report Type: 
  Country: None (occurrence: None)
  Receive Date: 20120127
  Receipt Date: 20110212
  Transmission Date: 20120608
  Serious: No
  Sender: FDA-Public Use
  Company Number: US-ABBOTT-11P-163-0700949-00

PATIENT
  Age: 23 Year
  Sex: Female

DRUGS (3)
  1. HUMIRA [Suspect]
     Indication: CROHN'S DISEASE
     Dates: start: 20091101
  2. PENTASA [Concomitant]
     Indication: CROHN'S DISEASE
  3. SEASONALE [Concomitant]
     Indication: CONTRACEPTION

REACTIONS (10)
  - INJECTION SITE ERYTHEMA [None]
  - GAIT DISTURBANCE [None]
  - INJECTION SITE MACULE [None]
  - PAIN IN EXTREMITY [None]
  - INJECTION SITE PRURITUS [None]
  - INJECTION SITE VESICLES [None]
  - INJECTION SITE PAPULE [None]
  - INJECTION SITE PAIN [None]
  - INJECTION SITE OEDEMA [None]
  - INJECTION SITE WARMTH [None]
